FAERS Safety Report 9122341 (Version 5)
Quarter: 2013Q3

REPORT INFORMATION
  Report Type: Spontaneous
  Country: FR (occurrence: FR)
  Receive Date: 20130227
  Receipt Date: 20130808
  Transmission Date: 20140515
  Serious: Yes (Life-Threatening, Hospitalization)
  Sender: FDA-Public Use
  Company Number: FR-PFIZER INC-2013066017

PATIENT
  Age: 61 Year
  Sex: Female

DRUGS (7)
  1. XANAX [Suspect]
     Indication: PREMEDICATION
     Dosage: UNK
     Route: 048
     Dates: start: 20121003, end: 20121004
  2. ATARAX [Suspect]
     Indication: PREMEDICATION
     Dosage: UNK
     Route: 048
     Dates: start: 20121003, end: 20121004
  3. CEFAZOLINE PANPHARMA [Suspect]
     Indication: ANTIBIOTIC PROPHYLAXIS
     Dosage: 1 DF, SINGLE
     Route: 042
     Dates: start: 20121004, end: 20121004
  4. HYPNOVEL [Suspect]
     Indication: ANAESTHESIA
     Dosage: 1 DF, SINGLE
     Dates: start: 20121004, end: 20121004
  5. DIPRIVAN [Suspect]
     Indication: ANAESTHESIA
     Dosage: 1 DF, SINGLE
     Route: 042
     Dates: start: 20121004, end: 20121004
  6. SUFENTANIL [Suspect]
     Indication: ANAESTHESIA
     Dosage: 1 DF, SINGLE
     Dates: start: 20121004, end: 20121004
  7. TRACURIUM [Suspect]
     Indication: ANAESTHESIA
     Dosage: 1 DF, SINGLE
     Route: 042
     Dates: start: 20121004, end: 20121004

REACTIONS (2)
  - Anaphylactic shock [Recovered/Resolved]
  - Arthropathy [Unknown]
